FAERS Safety Report 12503237 (Version 1)
Quarter: 2016Q2

REPORT INFORMATION
  Report Type: Spontaneous
  Country: US (occurrence: None)
  Receive Date: 20160627
  Receipt Date: 20160627
  Transmission Date: 20160815
  Serious: Yes (Hospitalization, Disabling)
  Sender: FDA-Public Use
  Company Number: None

PATIENT
  Age: 34 Year
  Sex: Female
  Weight: 104.33 kg

DRUGS (2)
  1. MULTIHANCE [Suspect]
     Active Substance: GADOBENATE DIMEGLUMINE
     Indication: NUCLEAR MAGNETIC RESONANCE IMAGING
     Route: 042
     Dates: start: 20160525, end: 20160525
  2. VITAMIN D [Concomitant]
     Active Substance: CHOLECALCIFEROL

REACTIONS (24)
  - Heart rate decreased [None]
  - Wrong technique in product usage process [None]
  - Feeling hot [None]
  - Neuralgia [None]
  - Vision blurred [None]
  - Pain in extremity [None]
  - Constipation [None]
  - Hyperthyroidism [None]
  - Skin discolouration [None]
  - Facial pain [None]
  - Feeling abnormal [None]
  - Hypersensitivity [None]
  - Ocular icterus [None]
  - Tremor [None]
  - Pain [None]
  - Paraesthesia [None]
  - Skin tightness [None]
  - Arthralgia [None]
  - Pain in jaw [None]
  - Vein rupture [None]
  - Breast pain [None]
  - Bone pain [None]
  - Oral pain [None]
  - Headache [None]

NARRATIVE: CASE EVENT DATE: 20160525
